FAERS Safety Report 16187623 (Version 1)
Quarter: 2019Q2

REPORT INFORMATION
  Report Type: Spontaneous
  Country: CZ (occurrence: CZ)
  Receive Date: 20190412
  Receipt Date: 20190412
  Transmission Date: 20190711
  Serious: Yes (Life-Threatening, Hospitalization, Other)
  Sender: FDA-Public Use
  Company Number: CZ-ABBVIE-19K-217-2713545-00

PATIENT
  Age: 8 Year
  Sex: Male

DRUGS (3)
  1. HUMIRA [Suspect]
     Active Substance: ADALIMUMAB
     Indication: AUTOIMMUNE UVEITIS
     Route: 058
     Dates: start: 201411, end: 201703
  2. METOJECT PEN [Concomitant]
     Active Substance: METHOTREXATE
     Indication: IRIDOCYCLITIS
     Route: 048
     Dates: start: 201312, end: 201802
  3. HUMIRA [Suspect]
     Active Substance: ADALIMUMAB
     Indication: JUVENILE IDIOPATHIC ARTHRITIS
     Dosage: BECAUSE OF RELAPSE OF DISEASE TAKEN AGAIN.
     Route: 058

REACTIONS (4)
  - Meningism [Recovering/Resolving]
  - Disease recurrence [Unknown]
  - Meningococcal infection [Recovering/Resolving]
  - Meningitis [Unknown]

NARRATIVE: CASE EVENT DATE: 20190317
